FAERS Safety Report 15545155 (Version 2)
Quarter: 2018Q4

REPORT INFORMATION
  Report Type: Spontaneous
  Country: BE (occurrence: BE)
  Receive Date: 20181024
  Receipt Date: 20181031
  Transmission Date: 20190205
  Serious: Yes (Other)
  Sender: FDA-Public Use
  Company Number: BE-TAKEDA-2018TUS030407

PATIENT
  Sex: Female

DRUGS (1)
  1. ENTYVIO [Suspect]
     Active Substance: VEDOLIZUMAB
     Indication: COLITIS ULCERATIVE
     Dosage: UNK
     Route: 042
     Dates: start: 20181003

REACTIONS (9)
  - Malaise [Unknown]
  - Pulmonary embolism [Unknown]
  - Blood urine present [Unknown]
  - Dyspnoea [Unknown]
  - C-reactive protein increased [Unknown]
  - Dysuria [Unknown]
  - Pollakiuria [Unknown]
  - Urinary tract infection [Unknown]
  - Fatigue [Unknown]

NARRATIVE: CASE EVENT DATE: 201810
